FAERS Safety Report 8975928 (Version 1)
Quarter: 2012Q4

REPORT INFORMATION
  Report Type: 
  Country: US (occurrence: US)
  Receive Date: 20121219
  Receipt Date: 20121219
  Transmission Date: 20130627
  Serious: Yes (Other)
  Sender: FDA-Public Use
  Company Number: PHHY2012US088651

PATIENT
  Age: 63 Year
  Sex: Female

DRUGS (1)
  1. BUFFERIN [Suspect]
     Indication: MIGRAINE
     Dosage: 2 DF
     Route: 048

REACTIONS (10)
  - Bronchitis [Recovered/Resolved]
  - Nail bed inflammation [Not Recovered/Not Resolved]
  - Nail disorder [Not Recovered/Not Resolved]
  - Nail injury [Recovering/Resolving]
  - Nail discomfort [Recovering/Resolving]
  - Nail growth abnormal [Not Recovered/Not Resolved]
  - Malaise [Recovered/Resolved]
  - Pain [Recovered/Resolved]
  - Nail discolouration [Recovering/Resolving]
  - Incorrect drug administration duration [Unknown]
